FAERS Safety Report 8787883 (Version 1)
Quarter: 2012Q4

REPORT INFORMATION
  Report Type: Report from Study
  Country: CO (occurrence: CO)
  Receive Date: 20120914
  Receipt Date: 20120914
  Transmission Date: 20130627
  Serious: Yes (Hospitalization)
  Sender: FDA-Public Use
  Company Number: CO-ROCHE-1127145

PATIENT
  Age: 31 Year
  Sex: Female
  Weight: 64 kg

DRUGS (1)
  1. CELLCEPT [Suspect]
     Indication: RENAL TRANSPLANT
     Route: 048
     Dates: start: 20100715

REACTIONS (1)
  - Kidney transplant rejection [Recovering/Resolving]
